FAERS Safety Report 16586836 (Version 4)
Quarter: 2019Q4

REPORT INFORMATION
  Report Type: Report from Study
  Country: JP (occurrence: JP)
  Receive Date: 20190717
  Receipt Date: 20191231
  Transmission Date: 20200122
  Serious: Yes (Death, Life-Threatening, Hospitalization, Other)
  Sender: FDA-Public Use
  Company Number: JP-PFIZER INC-2019292200

PATIENT
  Age: 42 Year
  Sex: Male
  Weight: 53 kg

DRUGS (9)
  1. BESPONSA [Suspect]
     Active Substance: INOTUZUMAB OZOGAMICIN
     Dosage: 0.5 MG/M2, 1X/DAY
     Route: 042
     Dates: start: 20180925, end: 20180925
  2. BESPONSA [Suspect]
     Active Substance: INOTUZUMAB OZOGAMICIN
     Indication: ACUTE LYMPHOCYTIC LEUKAEMIA REFRACTORY
     Dosage: 0.8 MG/M2, 1X/DAY
     Route: 042
     Dates: start: 20180911, end: 20180911
  3. MINIRINMELT [Concomitant]
     Active Substance: DESMOPRESSIN ACETATE
     Indication: DIABETES INSIPIDUS
     Dosage: UNK
     Route: 048
     Dates: start: 20180811, end: 20190123
  4. NEXIUM I.V. [Concomitant]
     Active Substance: ESOMEPRAZOLE SODIUM
     Indication: PEPTIC ULCER
     Dosage: UNK
     Route: 048
     Dates: start: 20180719, end: 20190109
  5. BESPONSA [Suspect]
     Active Substance: INOTUZUMAB OZOGAMICIN
     Dosage: 0.5 MG/M2, 1X/DAY
     Route: 042
     Dates: start: 20180918, end: 20180918
  6. URSODEOXYCHOLIC ACID [Concomitant]
     Active Substance: URSODIOL
     Indication: VENOOCCLUSIVE DISEASE
     Dosage: UNK
     Route: 048
     Dates: start: 20180908, end: 20181107
  7. HEPARIN [Concomitant]
     Active Substance: HEPARIN SODIUM
     Indication: VENOOCCLUSIVE DISEASE
     Dosage: UNK
     Route: 041
     Dates: start: 20180909, end: 20181223
  8. VICCLOX [ACICLOVIR] [Concomitant]
     Indication: HERPES ZOSTER
     Dosage: UNK
     Route: 048
     Dates: end: 20181204
  9. CORTRIL [Concomitant]
     Active Substance: HYDROCORTISONE
     Indication: ADRENAL INSUFFICIENCY
     Dosage: UNK
     Route: 048
     Dates: start: 20180629, end: 20190123

REACTIONS (4)
  - Graft versus host disease in liver [Fatal]
  - Cytomegalovirus gastritis [Unknown]
  - Venoocclusive liver disease [Recovering/Resolving]
  - Cytomegalovirus oesophagitis [Unknown]

NARRATIVE: CASE EVENT DATE: 20181213
